FAERS Safety Report 15010058 (Version 1)
Quarter: 2018Q2

REPORT INFORMATION
  Report Type: Spontaneous
  Country: US (occurrence: US)
  Receive Date: 20180614
  Receipt Date: 20180614
  Transmission Date: 20180711
  Serious: No
  Sender: FDA-Public Use
  Company Number: US-PFIZER INC-2018241562

PATIENT
  Age: 57 Year
  Sex: Female

DRUGS (3)
  1. SKELAXIN [Suspect]
     Active Substance: METAXALONE
     Indication: ARTHRALGIA
  2. SKELAXIN [Suspect]
     Active Substance: METAXALONE
     Indication: FIBROMYALGIA
     Dosage: 800 MG, THREE TIMES A DAY
     Route: 048
     Dates: start: 2017, end: 201806
  3. SKELAXIN [Suspect]
     Active Substance: METAXALONE
     Indication: BACK DISORDER

REACTIONS (2)
  - Intentional product misuse [Unknown]
  - Drug ineffective [Unknown]
